FAERS Safety Report 23966647 (Version 2)
Quarter: 2024Q3

REPORT INFORMATION
  Report Type: Spontaneous
  Country: US (occurrence: US)
  Receive Date: 20240612
  Receipt Date: 20240725
  Transmission Date: 20241016
  Serious: No
  Sender: CHIESI
  Company Number: US-CHIESI-2024CHF03378

PATIENT
  Age: 62 Year
  Sex: Female
  Weight: 57.2 kg

DRUGS (19)
  1. ELFABRIO [Suspect]
     Active Substance: PEGUNIGALSIDASE ALFA-IWXJ
     Indication: Fabry^s disease
     Dosage: 50 MILLIGRAM, QOW
     Route: 042
     Dates: start: 20240531
  2. Dulcolax [Concomitant]
     Indication: Constipation
     Dosage: 100 MILLIGRAM, PRN
     Route: 048
     Dates: start: 2020
  3. ESTRACE [Concomitant]
     Active Substance: ESTRADIOL
     Indication: Menopause
     Dosage: 0.1 DOSAGE FORM
     Route: 062
     Dates: start: 2020
  4. FINASTERIDE;MINOXIDIL [Concomitant]
     Indication: Alopecia
     Dosage: UNK, PRN
     Route: 062
     Dates: start: 2020
  5. VITAMINS [Concomitant]
     Active Substance: VITAMINS
     Indication: General physical condition
     Dosage: 1 DOSAGE FORM, QD
     Route: 048
     Dates: start: 2020
  6. HYDROCHLOROTHIAZIDE [Concomitant]
     Active Substance: HYDROCHLOROTHIAZIDE
     Indication: Hypertension
     Dosage: 12.5 MILLIGRAM, QD
     Route: 048
     Dates: start: 2020
  7. HYDROCORTISONE [Concomitant]
     Active Substance: HYDROCORTISONE\HYDROCORTISONE ACETATE
     Indication: Haemorrhoids
     Dosage: 1 DOSAGE FORM, QD
     Route: 061
     Dates: start: 2020
  8. COZAAR [Concomitant]
     Active Substance: LOSARTAN POTASSIUM
     Indication: Proteinuria
     Dosage: 50 MILLIGRAM, BID
     Route: 048
     Dates: start: 2020
  9. COZAAR [Concomitant]
     Active Substance: LOSARTAN POTASSIUM
     Indication: Hypertension
  10. PHOSPHORIC ACID\SODIUM PHOSPHATE, DIBASIC [Concomitant]
     Active Substance: PHOSPHORIC ACID\SODIUM PHOSPHATE, DIBASIC
     Indication: Haemorrhoids
     Dosage: 1 DOSAGE FORM, QD
     Route: 061
     Dates: start: 2020
  11. CRESTOR [Concomitant]
     Active Substance: ROSUVASTATIN CALCIUM
     Indication: Hypercholesterolaemia
     Dosage: 20 MILLIGRAM, QD
     Route: 048
     Dates: start: 2020
  12. SENOKOT [Concomitant]
     Active Substance: SENNOSIDES
     Indication: Constipation
     Dosage: 8.6 MILLIGRAM, PRN
     Route: 048
     Dates: start: 2020
  13. PLAVIX [Concomitant]
     Active Substance: CLOPIDOGREL BISULFATE
     Indication: Prophylaxis
     Dosage: 75 MILLIGRAM, QD
     Route: 048
     Dates: start: 20201210
  14. CALCIUM CITRATE [Concomitant]
     Active Substance: CALCIUM CITRATE
     Indication: Osteopenia
     Dosage: 1 DOSAGE FORM, QD
     Route: 048
     Dates: start: 2021
  15. EMPA [Concomitant]
     Indication: Chronic kidney disease
     Dosage: 10 MILLIGRAM
  16. EMPA [Concomitant]
     Indication: Proteinuria
  17. JARDIANCE [Concomitant]
     Active Substance: EMPAGLIFLOZIN
     Indication: Product used for unknown indication
     Dosage: 10 MILLIGRAM, QD
     Route: 048
  18. PROTOPIC [Concomitant]
     Active Substance: TACROLIMUS
     Indication: Product used for unknown indication
     Dosage: UNK
  19. KENALOG [Concomitant]
     Active Substance: TRIAMCINOLONE ACETONIDE
     Indication: Product used for unknown indication
     Dosage: UNK
     Dates: end: 202406

REACTIONS (2)
  - Vascular pain [Not Recovered/Not Resolved]
  - Pain in extremity [Not Recovered/Not Resolved]

NARRATIVE: CASE EVENT DATE: 20240603
